FAERS Safety Report 13182129 (Version 1)
Quarter: 2017Q1

REPORT INFORMATION
  Report Type: Spontaneous
  Country: US (occurrence: US)
  Receive Date: 20170202
  Receipt Date: 20170202
  Transmission Date: 20170428
  Serious: Yes (Life-Threatening, Hospitalization)
  Sender: FDA-Public Use
  Company Number: None

PATIENT
  Age: 65 Year
  Sex: Female
  Weight: 69.75 kg

DRUGS (31)
  1. XARELTO [Suspect]
     Active Substance: RIVAROXABAN
     Indication: THROMBOSIS PROPHYLAXIS
     Dosage: ?          QUANTITY:1 TABLET(S);?
     Route: 048
     Dates: start: 20140501, end: 20160518
  2. XARELTO [Suspect]
     Active Substance: RIVAROXABAN
     Indication: CEREBROVASCULAR ACCIDENT PROPHYLAXIS
     Dosage: ?          QUANTITY:1 TABLET(S);?
     Route: 048
     Dates: start: 20140501, end: 20160518
  3. LEXAPRO [Concomitant]
     Active Substance: ESCITALOPRAM OXALATE
  4. PROPANOLOL INDEREL [Concomitant]
  5. GUAIFENESIN MUCINEX [Concomitant]
  6. MAGNESIUM [Concomitant]
     Active Substance: MAGNESIUM
  7. BECLOMETHASONE QVAR [Concomitant]
  8. SINGULAIR [Concomitant]
     Active Substance: MONTELUKAST SODIUM
  9. NITGLYCERIN NITROQUICK [Concomitant]
  10. PANTOPRAZOLE PROTONIX [Concomitant]
  11. RHINOCORT BUDESONIDE [Concomitant]
  12. CITRACAL + D [Concomitant]
     Active Substance: CALCIUM CITRATE\VITAMIN D
  13. ALBUTEROL-IPRATROPIUM (COMBIVENT 103) [Concomitant]
  14. ISOSORBIDE MONONITRATE IMDUR [Concomitant]
  15. PANCRELIPASE LIP-PROT-AMYL CREON [Concomitant]
  16. CRANBERRY EXTRACT [Concomitant]
     Active Substance: CRANBERRY JUICE
  17. BUPROPION WELLBUTRIN SR [Concomitant]
  18. LISINOPRIL ZESTRIL [Concomitant]
  19. SIMVASTATIN ZOCOR [Concomitant]
  20. CETIRIZINE ZYRTEC [Concomitant]
  21. TEA [Concomitant]
     Active Substance: TEA LEAF
  22. FLUTICASONE-SALMETEROL ADVAIR [Concomitant]
  23. SYNTHROID [Concomitant]
     Active Substance: LEVOTHYROXINE SODIUM
  24. VITAMIN D3 [Concomitant]
     Active Substance: CHOLECALCIFEROL
  25. ESTRADIOL ESTRACE [Concomitant]
  26. COENZYME Q10 [Concomitant]
     Active Substance: UBIDECARENONE
  27. MULTIPLE VITAMINS [Concomitant]
     Active Substance: VITAMINS
  28. ALBUTEROL SULFATE. [Concomitant]
     Active Substance: ALBUTEROL SULFATE
  29. FUROSEMIDE LASIX [Concomitant]
  30. NEURONTIN GABAPENTIN [Concomitant]
  31. VITAMIN C/ASCORBIC ACID [Concomitant]

REACTIONS (6)
  - Headache [None]
  - Cerebral haemorrhage [None]
  - Gait disturbance [None]
  - Nervous system disorder [None]
  - Fatigue [None]
  - Hypersomnia [None]

NARRATIVE: CASE EVENT DATE: 20160518
